FAERS Safety Report 16349347 (Version 1)
Quarter: 2019Q2

REPORT INFORMATION
  Report Type: Spontaneous
  Country: CZ (occurrence: CZ)
  Receive Date: 20190523
  Receipt Date: 20190523
  Transmission Date: 20190711
  Serious: Yes (Death)
  Sender: FDA-Public Use
  Company Number: CZ-MYLANLABS-2019M1047780

PATIENT
  Age: 66 Year
  Sex: Male

DRUGS (2)
  1. PACLITAXEL. [Suspect]
     Active Substance: PACLITAXEL
     Indication: EXTRAMAMMARY PAGET^S DISEASE
     Dosage: UNK
     Route: 065
  2. DENOSUMAB [Suspect]
     Active Substance: DENOSUMAB
     Indication: EXTRAMAMMARY PAGET^S DISEASE
     Dosage: UNK
     Route: 065

REACTIONS (2)
  - Extramammary Paget^s disease [Fatal]
  - Malignant neoplasm progression [Fatal]
